FAERS Safety Report 5204650-4 (Version None)
Quarter: 2007Q1

REPORT INFORMATION
  Report Type: 
  Country: None (occurrence: None)
  Receive Date: 20070110
  Receipt Date: 20060606
  Transmission Date: 20070707
  Serious: Yes (Other)
  Sender: FDA-Public Use
  Company Number: US-BRISTOL-MYERS SQUIBB COMPANY-13402730

PATIENT
  Sex: Male
  Weight: 63 kg

DRUGS (3)
  1. ABILIFY [Suspect]
     Indication: SCHIZOPHRENIA
     Route: 048
  2. GEODON [Suspect]
     Route: 048
  3. KLONOPIN [Concomitant]

REACTIONS (3)
  - AGGRESSION [None]
  - PSYCHIATRIC SYMPTOM [None]
  - THINKING ABNORMAL [None]
